FAERS Safety Report 6000280-5 (Version None)
Quarter: 2008Q4

REPORT INFORMATION
  Report Type: 
  Country: None (occurrence: None)
  Receive Date: 20081215
  Receipt Date: 20081210
  Transmission Date: 20090506
  Serious: Yes (Other)
  Sender: FDA-Public Use
  Company Number: US-ELI_LILLY_AND_COMPANY-US200812002991

PATIENT
  Age: 75 Year
  Sex: Female

DRUGS (1)
  1. HUMULIN N [Suspect]
     Indication: DIABETES MELLITUS
     Dosage: 22 U, EACH EVENING
     Dates: start: 20000101

REACTIONS (5)
  - ARTHRITIS [None]
  - BLINDNESS [None]
  - BLOOD GLUCOSE DECREASED [None]
  - CORONARY ARTERY BYPASS [None]
  - DEAFNESS [None]
